APPROVED DRUG PRODUCT: DROXIDOPA
Active Ingredient: DROXIDOPA
Strength: 200MG
Dosage Form/Route: CAPSULE;ORAL
Application: A214543 | Product #002 | TE Code: AB
Applicant: SOMERSET THERAPEUTICS LLC
Approved: May 5, 2021 | RLD: No | RS: No | Type: RX